FAERS Safety Report 16528421 (Version 1)
Quarter: 2019Q3

REPORT INFORMATION
  Report Type: Spontaneous
  Country: US (occurrence: US)
  Receive Date: 20190704
  Receipt Date: 20190704
  Transmission Date: 20191004
  Serious: No
  Sender: FDA-Public Use
  Company Number: US-GW PHARMA-201905USGW1397

PATIENT

DRUGS (1)
  1. EPIDIOLEX [Suspect]
     Active Substance: CANNABIDIOL
     Indication: PRODUCT USED FOR UNKNOWN INDICATION
     Dosage: 9.22 MG/KG, 460 MILLIGRAM, BID
     Route: 048
     Dates: start: 20181221

REACTIONS (2)
  - Vomiting [Unknown]
  - Aggression [Unknown]

NARRATIVE: CASE EVENT DATE: 201812
